FAERS Safety Report 26110399 (Version 1)
Quarter: 2025Q4

REPORT INFORMATION
  Report Type: Spontaneous
  Country: US (occurrence: US)
  Receive Date: 20251202
  Receipt Date: 20251202
  Transmission Date: 20260117
  Serious: No
  Sender: JOHNSON AND JOHNSON
  Company Number: US-JNJFOC-20251162598

PATIENT

DRUGS (2)
  1. RYBREVANT [Suspect]
     Active Substance: AMIVANTAMAB-VMJW
     Indication: Non-small cell lung cancer metastatic
     Route: 042
  2. LAZERTINIB [Concomitant]
     Active Substance: LAZERTINIB
     Indication: Non-small cell lung cancer metastatic
     Route: 048

REACTIONS (2)
  - Rash [Unknown]
  - Hypotension [Unknown]
